FAERS Safety Report 14531673 (Version 1)
Quarter: 2018Q1

REPORT INFORMATION
  Report Type: Spontaneous
  Country: AU (occurrence: AU)
  Receive Date: 20180214
  Receipt Date: 20180214
  Transmission Date: 20180509
  Serious: Yes (Other)
  Sender: FDA-Public Use
  Company Number: AU-JNJFOC-20180214701

PATIENT
  Sex: Female

DRUGS (2)
  1. REMICADE [Suspect]
     Active Substance: INFLIXIMAB
     Indication: CROHN^S DISEASE
     Dosage: APP 10 YEARS AGO
     Route: 042
     Dates: start: 2008
  2. REMICADE [Suspect]
     Active Substance: INFLIXIMAB
     Indication: CROHN^S DISEASE
     Dosage: APP 5 YEARS AGO
     Route: 042
     Dates: start: 2013

REACTIONS (3)
  - Angina pectoris [Recovered/Resolved]
  - Spinal pain [Recovered/Resolved]
  - Infusion related reaction [Recovered/Resolved]
